FAERS Safety Report 10004082 (Version 1)
Quarter: 2014Q1

REPORT INFORMATION
  Report Type: Other
  Country: US (occurrence: US)
  Receive Date: 20140312
  Receipt Date: 20140312
  Transmission Date: 20141002
  Serious: Yes (Other)
  Sender: FDA-Public Use
  Company Number: US-ACORDA-ACO_102111_2014

PATIENT
  Sex: Female
  Weight: 58.5 kg

DRUGS (4)
  1. AMPYRA [Suspect]
     Indication: GAIT DISTURBANCE
     Dosage: 10 MG, BID
     Route: 048
  2. TYSABRI [Concomitant]
     Indication: PRODUCT USED FOR UNKNOWN INDICATION
     Dosage: UNK
  3. OXYBUTYNIN [Concomitant]
     Indication: PRODUCT USED FOR UNKNOWN INDICATION
     Dosage: UNK
  4. VITAMINS [Concomitant]
     Indication: PRODUCT USED FOR UNKNOWN INDICATION
     Dosage: UNK

REACTIONS (6)
  - Wrist fracture [Recovering/Resolving]
  - Fall [Recovered/Resolved]
  - Hysterectomy [Unknown]
  - Muscular weakness [Not Recovered/Not Resolved]
  - Skin discolouration [Not Recovered/Not Resolved]
  - Gait disturbance [Not Recovered/Not Resolved]
